FAERS Safety Report 9547454 (Version 2)
Quarter: 2013Q4

REPORT INFORMATION
  Report Type: Spontaneous
  Country: GR (occurrence: GR)
  Receive Date: 20130924
  Receipt Date: 20131121
  Transmission Date: 20140711
  Serious: Yes (Hospitalization)
  Sender: FDA-Public Use
  Company Number: GR-MILLENNIUM PHARMACEUTICALS, INC.-2013JNJ000320

PATIENT
  Sex: 0

DRUGS (14)
  1. VELCADE [Suspect]
     Indication: PLASMA CELL MYELOMA
     Dosage: 1.3 MG/M2, UNK
     Route: 058
     Dates: start: 20130408, end: 20130617
  2. DEXAMETHASONE [Concomitant]
     Indication: PLASMA CELL MYELOMA
     Dosage: 20 MG, UNK
     Route: 048
     Dates: start: 20130408, end: 20130618
  3. CONCOR [Concomitant]
     Indication: CARDIAC FAILURE
     Dosage: UNK
     Dates: start: 20120516
  4. LASIX                              /00032601/ [Concomitant]
     Indication: CARDIAC FAILURE
     Dosage: UNK
     Dates: start: 2006
  5. ZURCAZOL [Concomitant]
     Indication: GASTRITIS
     Dosage: UNK
     Dates: start: 20120212
  6. BACTRIMEL [Concomitant]
     Indication: PROPHYLAXIS
     Dosage: UNK
     Dates: start: 20120213
  7. VALTREX [Concomitant]
     Indication: INFECTION PROPHYLAXIS
     Dosage: UNK
     Dates: start: 20130213
  8. SAXAGLIPTIN [Concomitant]
     Indication: DIABETES MELLITUS
     Dosage: UNK
     Dates: start: 20120516
  9. DIAMICRON [Concomitant]
     Indication: DIABETES MELLITUS
     Dosage: UNK
     Dates: start: 20120516
  10. ZYLORIC                            /00003301/ [Concomitant]
     Indication: HYPERURICAEMIA
     Dosage: UNK
     Dates: start: 20121024
  11. DUROGESIC [Concomitant]
     Indication: BONE PAIN
     Dosage: UNK
     Dates: start: 20120516
  12. RENITEC                            /00574901/ [Concomitant]
     Indication: CARDIAC FAILURE
     Dosage: UNK
     Dates: start: 2012
  13. ACETYLSALICYLIC ACID [Concomitant]
     Indication: CARDIAC FAILURE
     Dosage: UNK
     Dates: start: 20120912
  14. MAGNESIUM STEARATE [Concomitant]
     Indication: MUSCLE SPASMS
     Dosage: UNK
     Dates: start: 20120516

REACTIONS (1)
  - Diverticulitis [Recovering/Resolving]
